FAERS Safety Report 5378933-1 (Version None)
Quarter: 2007Q3

REPORT INFORMATION
  Report Type: 
  Country: None (occurrence: None)
  Receive Date: 20070705
  Receipt Date: 20070425
  Transmission Date: 20080115
  Serious: No
  Sender: FDA-Public Use
  Company Number: A0648700A

PATIENT
  Age: 66 Year
  Sex: Female

DRUGS (4)
  1. PARNATE [Suspect]
     Indication: POST-TRAUMATIC STRESS DISORDER
     Dosage: 10MG TWICE PER DAY
     Route: 048
     Dates: start: 19860101
  2. KLONOPIN [Concomitant]
  3. VITAMIN D [Concomitant]
  4. CALCIUM CHLORIDE [Concomitant]

REACTIONS (2)
  - ANXIETY [None]
  - DEPRESSION [None]
